FAERS Safety Report 8437102-9 (Version None)
Quarter: 2012Q2

REPORT INFORMATION
  Report Type: 
  Country: None (occurrence: None)
  Receive Date: 20120614
  Receipt Date: 20120608
  Transmission Date: 20120825
  Serious: Yes (Hospitalization, Other)
  Sender: FDA-Public Use
  Company Number: FR-PFIZER INC-2012137855

PATIENT
  Age: 81 Year
  Sex: Female

DRUGS (5)
  1. ATORVASTATIN [Suspect]
     Dosage: 40 MG, 1X/DAY
     Route: 048
  2. PREVISCAN [Suspect]
     Dosage: 1 DF, 1X/DAY
     Route: 048
  3. TENORDATE [Suspect]
     Dosage: 50 MG, 1X/DAY
     Route: 048
  4. DIGOXIN [Suspect]
     Dosage: 0.125 MG, 1X/DAY
     Route: 048
  5. ALLOPURINOL [Suspect]
     Dosage: 1 DF, 1X/DAY
     Route: 048

REACTIONS (6)
  - MALAISE [None]
  - HAEMATOMA [None]
  - CERVICAL VERTEBRAL FRACTURE [None]
  - HEAD INJURY [None]
  - HEADACHE [None]
  - FALL [None]
